FAERS Safety Report 8915225 (Version 1)
Quarter: 2012Q4

REPORT INFORMATION
  Report Type: 
  Country: FI (occurrence: FI)
  Receive Date: 20121119
  Receipt Date: 20121119
  Transmission Date: 20130627
  Serious: Yes (Other)
  Sender: FDA-Public Use
  Company Number: FI-ELI_LILLY_AND_COMPANY-FI201211002532

PATIENT
  Sex: Female

DRUGS (6)
  1. FORSTEO [Suspect]
     Indication: OSTEOPOROSIS
     Dosage: 20 ug, qd
     Route: 058
     Dates: start: 20110527, end: 201203
  2. PREDNISOLON [Concomitant]
     Indication: RHEUMATIC DISORDER
     Dosage: 5 mg, unknown
     Route: 065
  3. OXIKLORIN [Concomitant]
     Indication: RHEUMATIC DISORDER
     Dosage: UNK, unknown
     Route: 065
  4. SALAZOPYRIN [Concomitant]
     Indication: RHEUMATIC DISORDER
     Dosage: UNK, unknown
     Route: 065
  5. CALCIUM D [Concomitant]
     Indication: SUPPLEMENTATION THERAPY
     Dosage: UNK, unknown
     Route: 065
  6. ESTROGENS [Concomitant]
     Dosage: UNK, unknown
     Route: 065

REACTIONS (3)
  - Renal atrophy [Not Recovered/Not Resolved]
  - Musculoskeletal stiffness [Not Recovered/Not Resolved]
  - Arthropathy [Not Recovered/Not Resolved]
